FAERS Safety Report 8620596-3 (Version None)
Quarter: 2012Q3

REPORT INFORMATION
  Report Type: 
  Country: None (occurrence: None)
  Receive Date: 20120824
  Receipt Date: 20120815
  Transmission Date: 20120928
  Serious: Yes (Death, Hospitalization)
  Sender: FDA-Public Use
  Company Number: US-ACTELION-A-NJ2012-68375

PATIENT
  Age: 67 Year
  Sex: Female

DRUGS (3)
  1. EPOPROSTENOL SODIUM [Suspect]
     Indication: PORTOPULMONARY HYPERTENSION
     Dosage: 24 NG/KG, PER MIN
     Route: 041
     Dates: start: 20111121
  2. SILDENAFIL [Concomitant]
  3. LETAIRIS [Concomitant]

REACTIONS (5)
  - DEATH [None]
  - WAIST CIRCUMFERENCE INCREASED [None]
  - VOMITING [None]
  - ABDOMINAL DISCOMFORT [None]
  - CONDITION AGGRAVATED [None]
